FAERS Safety Report 7969001-0 (Version None)
Quarter: 2011Q4

REPORT INFORMATION
  Report Type: 
  Country: None (occurrence: None)
  Receive Date: 20111209
  Receipt Date: 20111205
  Transmission Date: 20120403
  Serious: Yes (Other)
  Sender: FDA-Public Use
  Company Number: US-AMGEN-USASP2011064558

PATIENT
  Age: 51 Year
  Sex: Female

DRUGS (2)
  1. ENBREL [Suspect]
     Indication: RHEUMATOID ARTHRITIS
     Dosage: 50 MG, QWK
     Dates: start: 20110601
  2. ENBREL [Suspect]
     Dosage: 50 MG, QWK
     Dates: start: 20080101

REACTIONS (3)
  - ROAD TRAFFIC ACCIDENT [None]
  - JOINT INJURY [None]
  - INTERVERTEBRAL DISC OPERATION [None]
